FAERS Safety Report 6061946-4 (Version None)
Quarter: 2009Q1

REPORT INFORMATION
  Report Type: 
  Country: None (occurrence: None)
  Receive Date: 20090202
  Receipt Date: 20090130
  Transmission Date: 20090719
  Serious: Yes (Death, Hospitalization)
  Sender: FDA-Public Use
  Company Number: PHHY2009GB01206

PATIENT
  Sex: Female

DRUGS (1)
  1. CLOZARIL [Suspect]
     Indication: SCHIZOPHRENIA
     Dosage: 300 MG NOCTE
     Route: 048
     Dates: start: 20080101

REACTIONS (4)
  - ASPHYXIA [None]
  - CHOKING [None]
  - CONVULSION [None]
  - HYPOXIC ENCEPHALOPATHY [None]
